FAERS Safety Report 9996461 (Version 1)
Quarter: 2014Q1

REPORT INFORMATION
  Report Type: Spontaneous
  Country: US (occurrence: US)
  Receive Date: 20140311
  Receipt Date: 20140311
  Transmission Date: 20141002
  Serious: Yes (Other)
  Sender: FDA-Public Use
  Company Number: PHHY2014US026145

PATIENT
  Age: 44 Year
  Sex: Female

DRUGS (5)
  1. METFORMIN [Suspect]
     Indication: INSULIN RESISTANCE
     Dosage: 500 MG, PER DAY
  2. CALCIUM [Suspect]
     Dosage: 1000 MG, PER DAY
     Route: 048
  3. THYROID HORMONES [Suspect]
  4. ASPIRIN [Suspect]
     Dosage: 81 MG, PER DAY
     Route: 048
  5. IMMUNOGLOBULIN G HUMAN [Suspect]
     Dosage: 400 MG/KG, UNK
     Route: 042

REACTIONS (2)
  - Abortion spontaneous [Unknown]
  - Maternal exposure during pregnancy [Unknown]
